FAERS Safety Report 24983274 (Version 1)
Quarter: 2025Q1

REPORT INFORMATION
  Report Type: Report from Study
  Country: US (occurrence: US)
  Receive Date: 20250219
  Receipt Date: 20250219
  Transmission Date: 20250408
  Serious: Yes (Other)
  Sender: ABBVIE
  Company Number: US-ABBVIE-6136999

PATIENT
  Sex: Female

DRUGS (1)
  1. CREON [Suspect]
     Active Substance: PANCRELIPASE AMYLASE\PANCRELIPASE LIPASE\PANCRELIPASE PROTEASE
     Indication: Product used for unknown indication
     Route: 048

REACTIONS (7)
  - Visual impairment [Unknown]
  - Vertigo [Unknown]
  - Gait disturbance [Unknown]
  - Impaired driving ability [Unknown]
  - Confusional state [Unknown]
  - Memory impairment [Unknown]
  - Dizziness [Unknown]
